FAERS Safety Report 8902743 (Version 2)
Quarter: 2013Q2

REPORT INFORMATION
  Report Type: Spontaneous
  Country: US (occurrence: US)
  Receive Date: 20121112
  Receipt Date: 20130422
  Transmission Date: 20140414
  Serious: Yes (Hospitalization)
  Sender: FDA-Public Use
  Company Number: US-BAYER-2012-115973

PATIENT
  Age: 16 Year
  Sex: Female
  Weight: 54.5 kg

DRUGS (13)
  1. YAZ [Suspect]
  2. YASMIN [Suspect]
     Dosage: UNK
     Dates: start: 200909, end: 200912
  3. REMICADE [Concomitant]
     Dosage: 300 MG, UNK
     Route: 042
     Dates: start: 20091009
  4. ACETAMINOPHEN [Concomitant]
     Dosage: 650 MG, UNK
     Route: 048
     Dates: start: 20091121
  5. BENADRYL [Concomitant]
     Dosage: 25 MG, UNK
     Route: 048
     Dates: start: 20091121
  6. FORTE PLUS [Concomitant]
  7. HEPARIN FLUSH [Concomitant]
     Route: 042
  8. NORMAL SALINE [Concomitant]
     Route: 042
  9. CYTOVENE [GANCICLOVIR] [Concomitant]
     Dosage: 270 MG, EVERY 12 HOURS
     Route: 042
     Dates: start: 20091208
  10. ASACOL [Concomitant]
     Dosage: 400 MG, UNK
     Route: 048
  11. FERREX [Concomitant]
     Dosage: 150 MG, UNK
     Route: 048
  12. APRI [Concomitant]
  13. NORETHINDRONE [Concomitant]

REACTIONS (8)
  - Pulmonary embolism [Recovered/Resolved]
  - Deep vein thrombosis [Recovered/Resolved]
  - Injury [Recovered/Resolved]
  - Pain [Recovered/Resolved]
  - Emotional distress [None]
  - General physical health deterioration [Recovered/Resolved]
  - Anxiety [None]
  - Pain [None]
